FAERS Safety Report 18966822 (Version 1)
Quarter: 2021Q1

REPORT INFORMATION
  Report Type: Spontaneous
  Country: US (occurrence: US)
  Receive Date: 20210304
  Receipt Date: 20210304
  Transmission Date: 20210420
  Serious: No
  Sender: FDA-Public Use
  Company Number: US-AUROBINDO-AUR-APL-2020-056889

PATIENT
  Age: 85 Year
  Sex: Female
  Weight: 45.8 kg

DRUGS (2)
  1. LEVETIRACETAM TABLET [Suspect]
     Active Substance: LEVETIRACETAM
     Indication: CONCUSSION
     Dosage: 500 MILLIGRAM, SINGLE
     Route: 048
     Dates: start: 20201109, end: 20201109
  2. FISH OIL [Concomitant]
     Active Substance: FISH OIL
     Indication: PRODUCT USED FOR UNKNOWN INDICATION
     Dosage: UNK
     Route: 048

REACTIONS (2)
  - Muscular weakness [Unknown]
  - Feeling abnormal [Unknown]
